FAERS Safety Report 6277760-0 (Version None)
Quarter: 2009Q3

REPORT INFORMATION
  Report Type: 
  Country: None (occurrence: None)
  Receive Date: 20090722
  Receipt Date: 20090714
  Transmission Date: 20100115
  Serious: Yes (Hospitalization)
  Sender: FDA-Public Use
  Company Number: B0584415A

PATIENT
  Sex: Male

DRUGS (8)
  1. LAMICTAL [Suspect]
     Indication: EPILEPSY
     Route: 048
     Dates: start: 20081218
  2. TEGRETOL [Concomitant]
     Dosage: 200MG THREE TIMES PER DAY
     Route: 048
  3. GABAPENTIN [Concomitant]
     Route: 048
     Dates: end: 20090708
  4. GABAPENTIN [Concomitant]
     Dosage: 800MG THREE TIMES PER DAY
     Route: 048
     Dates: start: 20090709
  5. SODIUM BROMIDE [Concomitant]
     Dosage: 500MG PER DAY
     Route: 048
     Dates: start: 20090430, end: 20090506
  6. SODIUM BROMIDE [Concomitant]
     Dosage: 1000MG PER DAY
     Route: 048
     Dates: start: 20090507, end: 20090513
  7. SODIUM BROMIDE [Concomitant]
     Dosage: 1500MG PER DAY
     Route: 048
     Dates: start: 20090514, end: 20090520
  8. SODIUM BROMIDE [Concomitant]
     Dosage: 2000MG PER DAY
     Route: 048
     Dates: start: 20090521

REACTIONS (6)
  - AGGRESSION [None]
  - AGITATION [None]
  - ANXIETY [None]
  - MENTAL DISORDER [None]
  - STARING [None]
  - VERBAL ABUSE [None]
